FAERS Safety Report 9738928 (Version 1)
Quarter: 2013Q4

REPORT INFORMATION
  Report Type: Report from Study
  Country: US (occurrence: US)
  Receive Date: 20131209
  Receipt Date: 20131209
  Transmission Date: 20140711
  Serious: Yes (Hospitalization, Other)
  Sender: FDA-Public Use
  Company Number: US-BAYER-2013-145462

PATIENT
  Age: 24 Year
  Sex: Male

DRUGS (10)
  1. REGORAFENIB [Suspect]
     Indication: GASTRIC CANCER
     Dosage: 160 MG, UNK
     Dates: start: 20130821
  2. LEUKOVORIN [Suspect]
     Indication: GASTRIC CANCER
     Dosage: UNK
     Dates: start: 20130821
  3. OXALIPLATIN [Suspect]
     Indication: GASTRIC CANCER
     Dosage: UNK
     Dates: start: 20130821
  4. 5-FU [Suspect]
     Indication: GASTRIC CANCER
     Dosage: UNK
     Dates: start: 20130821
  5. DOCUSATE SODIUM [Concomitant]
     Dosage: 100 MG, UNK
     Dates: start: 20131002
  6. MAGNESIUM HYDROXIDE [Concomitant]
     Dosage: 400 MG, UNK
     Dates: start: 20131002
  7. METOCLOPRAMIDE [Concomitant]
     Dosage: 10 MG, UNK
     Dates: start: 20130821
  8. ONDANSETRON [Concomitant]
     Dosage: 8 MG, UNK
     Dates: start: 20130821
  9. OXYCODONE [Concomitant]
     Dosage: 2 MG, UNK
     Dates: start: 20130821
  10. OXYCODONE HYDROCHLORIDE EXTENDED RELEASE [Concomitant]
     Dosage: 1 MG, UNK
     Dates: start: 20130821

REACTIONS (9)
  - Abdominal pain [None]
  - Dyspnoea exertional [None]
  - Vomiting [None]
  - Ventricular tachycardia [None]
  - Ventricular dysfunction [None]
  - Pleural effusion [None]
  - Left ventricular dysfunction [None]
  - Pneumonia [None]
  - Splenic infarction [None]
